FAERS Safety Report 16709328 (Version 2)
Quarter: 2019Q3

REPORT INFORMATION
  Report Type: Spontaneous
  Country: DE (occurrence: DE)
  Receive Date: 20190816
  Receipt Date: 20190828
  Transmission Date: 20191004
  Serious: Yes (Other)
  Sender: FDA-Public Use
  Company Number: DE-BRISTOL-MYERS SQUIBB COMPANY-BMS-2019-078093

PATIENT
  Age: 69 Year
  Sex: Male

DRUGS (2)
  1. NIVOLUMAB [Suspect]
     Active Substance: NIVOLUMAB
     Indication: METASTATIC MALIGNANT MELANOMA
     Dosage: UNK
     Route: 065
     Dates: start: 201901, end: 201903
  2. IPILIMUMAB [Suspect]
     Active Substance: IPILIMUMAB
     Indication: METASTATIC MALIGNANT MELANOMA
     Dosage: UNK
     Route: 065
     Dates: start: 201901, end: 201903

REACTIONS (6)
  - Lymphocytic hypophysitis [Unknown]
  - Pancreatitis [Unknown]
  - Radiculopathy [Unknown]
  - Myopathy [Unknown]
  - Type 1 diabetes mellitus [Unknown]
  - Hypophysitis [Unknown]

NARRATIVE: CASE EVENT DATE: 201905
